FAERS Safety Report 4677168-5 (Version None)
Quarter: 2005Q2

REPORT INFORMATION
  Report Type: 
  Country: None (occurrence: None)
  Receive Date: 20050527
  Receipt Date: 20050527
  Transmission Date: 20051028
  Serious: Yes (Other)
  Sender: FDA-Public Use
  Company Number: None

PATIENT
  Age: 25 Year
  Sex: Female
  Weight: 68.0396 kg

DRUGS (8)
  1. IMOGAM RABIES [Suspect]
     Indication: RABIES
     Dosage: 9CC SQ + IM
     Route: 058
     Dates: start: 19980814
  2. IMOGAM RABIES [Suspect]
  3. IMOVAX RABIES I.D. [Suspect]
     Dosage: 1 CC IM
     Route: 030
     Dates: start: 19980814
  4. IMOVAX RABIES I.D. [Suspect]
     Dosage: 1 CC IM
     Route: 030
     Dates: start: 19980817
  5. IMOVAX RABIES I.D. [Suspect]
     Dosage: 1 CC IM
     Route: 030
     Dates: start: 19980821
  6. IMOVAX RABIES I.D. [Suspect]
     Dosage: 1 CC IM
     Route: 030
     Dates: start: 19980827
  7. IMOVAX RABIES I.D. [Suspect]
     Dosage: 1 CC IM
     Route: 030
     Dates: start: 19980911
  8. IMOVAX RABIES I.D. [Suspect]

REACTIONS (12)
  - AUTOIMMUNE DISORDER [None]
  - DEMYELINATING POLYNEUROPATHY [None]
  - DIARRHOEA [None]
  - DIZZINESS [None]
  - EAR PAIN [None]
  - ENCEPHALOPATHY [None]
  - HEADACHE [None]
  - IMMUNE SYSTEM DISORDER [None]
  - MUSCLE CONTRACTIONS INVOLUNTARY [None]
  - NAUSEA [None]
  - PARAESTHESIA [None]
  - RAYNAUD'S PHENOMENON [None]
